FAERS Safety Report 7214146-6 (Version None)
Quarter: 2011Q1

REPORT INFORMATION
  Report Type: 
  Country: None (occurrence: None)
  Receive Date: 20110107
  Receipt Date: 20101229
  Transmission Date: 20110831
  Serious: Yes (Death)
  Sender: FDA-Public Use
  Company Number: RS-MPIJNJ-2010-06441

PATIENT

DRUGS (4)
  1. DEXAMETHASONE [Concomitant]
     Indication: ASTHMA
  2. CIPROCINAL [Concomitant]
     Indication: PNEUMONIA
  3. VELCADE [Suspect]
     Indication: MULTIPLE MYELOMA
     Dosage: 2.3 MG, UNK
     Dates: start: 20100309, end: 20101213
  4. BERODUAL [Concomitant]
     Indication: ASTHMA

REACTIONS (2)
  - PNEUMONIA [None]
  - ASTHMA [None]
